FAERS Safety Report 5640755-1 (Version None)
Quarter: 2008Q1

REPORT INFORMATION
  Report Type: 
  Country: None (occurrence: None)
  Receive Date: 20080227
  Receipt Date: 20080219
  Transmission Date: 20080703
  Serious: Yes (Hospitalization)
  Sender: FDA-Public Use
  Company Number: US-JNJFOC-20080205835

PATIENT
  Sex: Female

DRUGS (6)
  1. CYCLOBENZAPRINE HCL [Suspect]
     Indication: DRUG USE FOR UNKNOWN INDICATION
     Route: 048
  2. HYDROCHLOROTHIAZIDE [Concomitant]
  3. COUMADIN [Concomitant]
  4. CELEBREX [Concomitant]
  5. NEURONTIN [Concomitant]
  6. DARVOCET-N 100 [Concomitant]

REACTIONS (2)
  - CEREBROVASCULAR ACCIDENT [None]
  - CONVULSION [None]
